FAERS Safety Report 6792122-5 (Version None)
Quarter: 2010Q2

REPORT INFORMATION
  Report Type: 
  Country: None (occurrence: None)
  Receive Date: 20100624
  Receipt Date: 20090702
  Transmission Date: 20101027
  Serious: Yes (Other)
  Sender: FDA-Public Use
  Company Number: US-PFIZER INC-2008059699

PATIENT
  Sex: Female
  Weight: 52.15 kg

DRUGS (5)
  1. PROVERA [Suspect]
     Indication: HORMONE REPLACEMENT THERAPY
     Dosage: UNK
     Route: 048
     Dates: start: 19890101, end: 19950901
  2. PREMARIN [Suspect]
     Indication: HORMONE REPLACEMENT THERAPY
     Dosage: UNK
     Dates: start: 19890101, end: 19950901
  3. AMITRIPTYLINE [Concomitant]
     Indication: PAIN MANAGEMENT
     Dosage: 25 MG, UNK
  4. AMITRIPTYLINE [Concomitant]
     Indication: DEPRESSION
  5. OXAZEPAM [Concomitant]
     Indication: SLEEP DISORDER
     Dosage: UNK
     Dates: start: 19870101

REACTIONS (1)
  - BREAST CANCER [None]
